FAERS Safety Report 8800789 (Version 1)
Quarter: 2012Q4

REPORT INFORMATION
  Report Type: 
  Country: US (occurrence: US)
  Receive Date: 20120921
  Receipt Date: 20120921
  Transmission Date: 20130627
  Serious: Yes (Other)
  Sender: FDA-Public Use
  Company Number: US-PURDUE-USA-2012-0093009

PATIENT
  Age: 57 Year
  Sex: Female

DRUGS (5)
  1. OXYCONTIN (NDA 22-272) [Suspect]
     Indication: OSTEOARTHRITIS
     Dosage: 320 mg, daily
     Route: 048
     Dates: start: 20120910
  2. OXYCONTIN (NDA 22-272) [Suspect]
     Dosage: 400 mg, daily
     Route: 048
     Dates: start: 201208, end: 20120910
  3. OXYCONTIN (NDA 22-272) [Suspect]
     Dosage: 640 mg, daily
     Route: 048
     Dates: start: 201207, end: 201208
  4. OXYCONTIN (NDA 22-272) [Suspect]
     Dosage: 800 mg, daily
     Route: 048
     Dates: start: 201206, end: 201207
  5. OXYCONTIN (NDA 22-272) [Suspect]
     Dosage: 960 mg, daily
     Route: 048
     Dates: end: 201206

REACTIONS (10)
  - Drug dependence [Not Recovered/Not Resolved]
  - Drug withdrawal syndrome [Not Recovered/Not Resolved]
  - Suicidal ideation [Not Recovered/Not Resolved]
  - Feeling of despair [Not Recovered/Not Resolved]
  - Chest discomfort [Not Recovered/Not Resolved]
  - Diarrhoea [Not Recovered/Not Resolved]
  - Rhinorrhoea [Not Recovered/Not Resolved]
  - Anxiety [Not Recovered/Not Resolved]
  - Emotional distress [Not Recovered/Not Resolved]
  - Depressed mood [Not Recovered/Not Resolved]
